FAERS Safety Report 6451923-3 (Version None)
Quarter: 2009Q4

REPORT INFORMATION
  Report Type: 
  Country: None (occurrence: None)
  Receive Date: 20091123
  Receipt Date: 20091116
  Transmission Date: 20100525
  Serious: Yes (Hospitalization)
  Sender: FDA-Public Use
  Company Number: FR-AMGEN-QUU364807

PATIENT
  Age: 64 Year
  Sex: Male

DRUGS (8)
  1. ARANESP [Suspect]
     Indication: DRUG USE FOR UNKNOWN INDICATION
     Route: 058
     Dates: start: 20090401, end: 20090701
  2. EXFORGE [Concomitant]
  3. LASILIX [Concomitant]
  4. RAMIPRIL [Concomitant]
  5. TRANDATE [Concomitant]
  6. CONTRAMAL [Concomitant]
  7. ACUPAN [Concomitant]
     Route: 048
  8. GEMZAR [Concomitant]
     Dates: end: 20090630

REACTIONS (4)
  - INJECTION SITE PAIN [None]
  - MYOSITIS [None]
  - OEDEMA PERIPHERAL [None]
  - PARAESTHESIA [None]
